FAERS Safety Report 15389729 (Version 1)
Quarter: 2018Q3

REPORT INFORMATION
  Report Type: Spontaneous
  Country: US (occurrence: US)
  Receive Date: 20180917
  Receipt Date: 20180917
  Transmission Date: 20181010
  Serious: No
  Sender: FDA-Public Use
  Company Number: US-B.I. PHARMACEUTICALS,INC./RIDGEFIELD-2018-BI-044822

PATIENT
  Age: 60 Year
  Sex: Male

DRUGS (2)
  1. JARDIANCE [Suspect]
     Active Substance: EMPAGLIFLOZIN
     Dosage: FORM STRENGTH: 25 MG; FORMULATION: TABLET? ?ACTION(S) TAKEN WITH PRODUCT: DRUG WITHDRAWN
     Route: 048
     Dates: start: 20170916, end: 20171212
  2. JARDIANCE [Suspect]
     Active Substance: EMPAGLIFLOZIN
     Indication: TYPE 2 DIABETES MELLITUS
     Dosage: FORM STRENGTH: 10 MG; FORMULATION: TABLET?ACTION(S) TAKEN WITH PRODUCT: DOSE INCREASED
     Route: 048
     Dates: start: 20170623, end: 20170915

REACTIONS (3)
  - Glycosylated haemoglobin increased [Unknown]
  - Polyuria [Recovered/Resolved]
  - Blood creatine increased [Unknown]

NARRATIVE: CASE EVENT DATE: 201709
